FAERS Safety Report 17833728 (Version 1)
Quarter: 2020Q2

REPORT INFORMATION
  Report Type: Spontaneous
  Country: FR (occurrence: FR)
  Receive Date: 20200528
  Receipt Date: 20200528
  Transmission Date: 20200714
  Serious: Yes (Hospitalization)
  Sender: FDA-Public Use
  Company Number: FR-TEVA-2020-FR-1240456

PATIENT
  Age: 95 Year
  Sex: Female
  Weight: 69 kg

DRUGS (10)
  1. DALACINE [Suspect]
     Active Substance: CLINDAMYCIN
     Indication: ERYSIPELAS
     Dosage: 2.4 GRAM
     Route: 048
     Dates: start: 20200405, end: 20200416
  2. LEVOTHYROX 125 MICROGRAMMES, COMPRIME SECABLE [Concomitant]
     Active Substance: LEVOTHYROXINE SODIUM
     Dosage: 125 MCG
     Route: 048
  3. CANDESARTAN CILEXETIL. [Concomitant]
     Active Substance: CANDESARTAN CILEXETIL
     Dosage: 0.5 DF
     Route: 048
  4. PRADAXA [Concomitant]
     Active Substance: DABIGATRAN ETEXILATE MESYLATE
     Dosage: 220 MG
     Route: 048
  5. AMOXICILLINE TRIHYDRATEE [Suspect]
     Active Substance: AMOXICILLIN
     Indication: ERYSIPELAS
     Dosage: 4 GRAM
     Route: 048
     Dates: start: 20200325, end: 20200404
  6. MACROGOL 3350 [Concomitant]
     Active Substance: POLYETHYLENE GLYCOL 3350
     Route: 048
  7. THERALENE 5 MG, COMPRIM? PELLICUL? S?CABLE [Concomitant]
     Active Substance: TRIMEPRAZINE TARTRATE
     Dosage: 0.5 DF
     Route: 048
  8. FUROSEMIDE. [Concomitant]
     Active Substance: FUROSEMIDE
     Dosage: 60 MG IN THE MORNING AND 40 MG IN THE EVENING, UNIT DOSE 40 MG
     Route: 048
  9. PARACETAMOL [Concomitant]
     Active Substance: ACETAMINOPHEN
     Route: 048
  10. REPAGLINIDE. [Concomitant]
     Active Substance: REPAGLINIDE
     Dosage: 1.5 MG
     Route: 048

REACTIONS (2)
  - Rash maculo-papular [Recovering/Resolving]
  - Pruritus [Recovering/Resolving]

NARRATIVE: CASE EVENT DATE: 20200413
